FAERS Safety Report 5487540-1 (Version None)
Quarter: 2007Q4

REPORT INFORMATION
  Report Type: 
  Country: None (occurrence: None)
  Receive Date: 20071015
  Receipt Date: 20071003
  Transmission Date: 20080405
  Serious: Yes (Other)
  Sender: FDA-Public Use
  Company Number: GXKR2007GB08572

PATIENT
  Age: 40 Year
  Sex: Male

DRUGS (1)
  1. DICLOFENAC (NGX)(DICLOFENAC) UNKNOWN [Suspect]
     Indication: PERINEAL PAIN
     Dosage: 50 MG, TID,

REACTIONS (8)
  - DIAPHRAGMATIC DISORDER [None]
  - GASTROINTESTINAL MUCOSAL DISORDER [None]
  - INTESTINAL POLYP [None]
  - MASS [None]
  - NODULE [None]
  - SMALL INTESTINAL OBSTRUCTION [None]
  - SMALL INTESTINAL STENOSIS [None]
  - SMALL INTESTINE ULCER [None]
